FAERS Safety Report 16824130 (Version 1)
Quarter: 2019Q3

REPORT INFORMATION
  Report Type: Report from Study
  Country: US (occurrence: US)
  Receive Date: 20190918
  Receipt Date: 20190918
  Transmission Date: 20191005
  Serious: Yes (Hospitalization)
  Sender: FDA-Public Use
  Company Number: US-BAYER-2019-166764

PATIENT
  Age: 16 Year
  Sex: Male
  Weight: 46 kg

DRUGS (1)
  1. COPANLISIB. [Suspect]
     Active Substance: COPANLISIB
     Indication: RENAL CELL CARCINOMA RECURRENT
     Dosage: UNK
     Dates: start: 20190828

REACTIONS (2)
  - Hyperglycaemia [Recovered/Resolved]
  - Hyperuricaemia [Not Recovered/Not Resolved]

NARRATIVE: CASE EVENT DATE: 20190906
